FAERS Safety Report 7327993-7 (Version None)
Quarter: 2011Q1

REPORT INFORMATION
  Report Type: 
  Country: None (occurrence: None)
  Receive Date: 20110225
  Receipt Date: 20110225
  Transmission Date: 20110831
  Serious: Yes (Other)
  Sender: FDA-Public Use
  Company Number: None

PATIENT
  Sex: Female
  Weight: 104.3273 kg

DRUGS (2)
  1. DILTIAZEM [Suspect]
     Dosage: 180 XR DAILY ORAL
     Route: 048
  2. DILTIAZEM [Suspect]
     Dosage: 120 XR DAILY ORAL
     Route: 048
     Dates: start: 20040101

REACTIONS (2)
  - BLOOD PRESSURE INADEQUATELY CONTROLLED [None]
  - CONSTIPATION [None]
